FAERS Safety Report 18034776 (Version 2)
Quarter: 2020Q3

REPORT INFORMATION
  Report Type: Report from Study
  Country: BG (occurrence: BG)
  Receive Date: 20200716
  Receipt Date: 20200729
  Transmission Date: 20201103
  Serious: Yes (Death, Hospitalization, Other)
  Sender: FDA-Public Use
  Company Number: NVSC2020BG199135

PATIENT
  Age: 72 Year
  Sex: Female

DRUGS (1)
  1. REVOLADE [Suspect]
     Active Substance: ELTROMBOPAG
     Indication: THROMBOCYTOPENIA
     Dosage: 25 MG, BID (1 TABLET IN MORNING AND 1 TABLET IN EVENING)
     Route: 048
     Dates: start: 20200610

REACTIONS (11)
  - Hemiplegia [Unknown]
  - Pulmonary embolism [Unknown]
  - Back pain [Unknown]
  - Dyspnoea [Unknown]
  - Cerebrovascular accident [Fatal]
  - Movement disorder [Unknown]
  - Slow speech [Unknown]
  - Pain in extremity [Unknown]
  - Memory impairment [Unknown]
  - Palpitations [Unknown]
  - Vision blurred [Unknown]

NARRATIVE: CASE EVENT DATE: 20200610
